FAERS Safety Report 9949124 (Version 5)
Quarter: 2015Q1

REPORT INFORMATION
  Report Type: Spontaneous
  Country: US (occurrence: None)
  Receive Date: 20140122
  Receipt Date: 20150120
  Transmission Date: 20150721
  Serious: No
  Sender: FDA-Public Use
  Company Number: AEGR000204

PATIENT
  Age: 78 Year
  Sex: Female
  Weight: 63.9 kg

DRUGS (19)
  1. PLAVIX [Suspect]
     Active Substance: CLOPIDOGREL BISULFATE
     Indication: PRODUCT USED FOR UNKNOWN INDICATION
     Dates: end: 20141027
  2. BIOTIN [Concomitant]
     Active Substance: BIOTIN
  3. CALCIUM (CALCIUM GLUCONATE) [Concomitant]
  4. FLORA Q (LACTOBACILLUS ACIDOPHILUS) [Concomitant]
  5. MULTIVITAMIN (VITAMINS NOS) [Concomitant]
     Active Substance: VITAMINS
  6. COENZYME Q10 (UBIDECARENONE) [Concomitant]
  7. ROZEREM (RAMELTEON) [Concomitant]
  8. LOSARTAN (LOSARTAN POTASSIUM) [Concomitant]
  9. JUXTAPID [Suspect]
     Active Substance: LOMITAPIDE MESYLATE
     Indication: TYPE IIA HYPERLIPIDAEMIA
     Dates: start: 201310
  10. CRESTOR [Concomitant]
     Active Substance: ROSUVASTATIN CALCIUM
  11. CARVEDILOL. [Concomitant]
     Active Substance: CARVEDILOL
  12. LISINOPRIL. [Concomitant]
     Active Substance: LISINOPRIL
  13. ZINC (WOOL FAT, ZINC OXIDE) [Concomitant]
  14. OMEGA 3-6-9 (FISH OIL, TOCOPHEROL) [Concomitant]
  15. BABY ASPIRIN (ACETYLSALICYLIC ACID) [Suspect]
     Active Substance: ASPIRIN
     Indication: PRODUCT USED FOR UNKNOWN INDICATION
     Dosage: 3XW
  16. MAGNESIUM (MAGNESIUM CARBONATE) [Concomitant]
  17. VITAMIN E (TOCOPHERYL ACETATE) [Concomitant]
  18. PEPCID [Concomitant]
     Active Substance: FAMOTIDINE
  19. NITROSTAT (GLYCERYL TRINITRATE) [Concomitant]

REACTIONS (18)
  - Bone pain [None]
  - Back pain [None]
  - Epistaxis [None]
  - Blood test abnormal [None]
  - Eosinophil count increased [None]
  - Hypersensitivity [None]
  - Skin irritation [None]
  - Pruritus [None]
  - Burning sensation [None]
  - Flatulence [None]
  - Milk allergy [None]
  - Weight decreased [None]
  - Asthenia [None]
  - Vitamin B12 increased [None]
  - Diarrhoea [None]
  - Nausea [None]
  - Alopecia [None]
  - Rash [None]

NARRATIVE: CASE EVENT DATE: 2013
